FAERS Safety Report 7760556-8 (Version None)
Quarter: 2011Q3

REPORT INFORMATION
  Report Type: 
  Country: None (occurrence: None)
  Receive Date: 20110919
  Receipt Date: 20110916
  Transmission Date: 20111222
  Serious: Yes (Other)
  Sender: FDA-Public Use
  Company Number: US-PFIZER INC-2011220358

PATIENT
  Sex: Female
  Weight: 86.168 kg

DRUGS (1)
  1. LIPITOR [Suspect]
     Indication: BLOOD CHOLESTEROL INCREASED
     Dosage: 20 MG, 1X/DAY
     Route: 048
     Dates: end: 20110830

REACTIONS (6)
  - MYALGIA [None]
  - MUSCULAR WEAKNESS [None]
  - MOVEMENT DISORDER [None]
  - THYROID DISORDER [None]
  - PAIN IN EXTREMITY [None]
  - DYSSTASIA [None]
